FAERS Safety Report 24290446 (Version 1)
Quarter: 2024Q3

REPORT INFORMATION
  Report Type: Spontaneous
  Country: VN (occurrence: VN)
  Receive Date: 20240906
  Receipt Date: 20240906
  Transmission Date: 20241016
  Serious: Yes (Hospitalization, Other)
  Sender: CHEPLAPHARM
  Company Number: VN-ROCHE-10000068926

PATIENT
  Age: 67 Year
  Sex: Female

DRUGS (4)
  1. CAPECITABINE [Suspect]
     Active Substance: CAPECITABINE
     Indication: Breast cancer metastatic
  2. TRASTUZUMAB [Suspect]
     Active Substance: TRASTUZUMAB
     Indication: Breast cancer metastatic
  3. PACLITAXEL [Suspect]
     Active Substance: PACLITAXEL
     Indication: Breast cancer metastatic
  4. VINORELBINE [Suspect]
     Active Substance: VINORELBINE TARTRATE
     Indication: Breast cancer metastatic

REACTIONS (4)
  - Spinal pain [Unknown]
  - Back pain [Unknown]
  - Metastases to bone [Unknown]
  - Disease progression [Unknown]
